FAERS Safety Report 9706154 (Version 2)
Quarter: 2013Q4

REPORT INFORMATION
  Report Type: Spontaneous
  Country: US (occurrence: US)
  Receive Date: 20131124
  Receipt Date: 20131124
  Transmission Date: 20140711
  Serious: Yes (Other)
  Sender: FDA-Public Use
  Company Number: US-SANOFI-AVENTIS-2012SA089479

PATIENT
  Sex: Male

DRUGS (2)
  1. PLAVIX [Suspect]
     Indication: STENT PLACEMENT
     Route: 065
     Dates: start: 20040628, end: 20120430
  2. ASPIRIN [Suspect]
     Indication: STENT PLACEMENT

REACTIONS (1)
  - Gastrointestinal haemorrhage [Not Recovered/Not Resolved]
